FAERS Safety Report 19775702 (Version 1)
Quarter: 2021Q3

REPORT INFORMATION
  Report Type: Spontaneous
  Country: DE (occurrence: DE)
  Receive Date: 20210901
  Receipt Date: 20210901
  Transmission Date: 20211014
  Serious: Yes (Hospitalization)
  Sender: FDA-Public Use
  Company Number: DE-TAKEDA-2021TUS049349

PATIENT
  Age: 34 Year
  Sex: Female
  Weight: 60 kg

DRUGS (1)
  1. ENTYVIO [Suspect]
     Active Substance: VEDOLIZUMAB
     Indication: COLITIS ULCERATIVE
     Dosage: 108 MILLIGRAM, MONTHLY
     Route: 065
     Dates: start: 20191001

REACTIONS (1)
  - Chronic sinusitis [Recovered/Resolved with Sequelae]

NARRATIVE: CASE EVENT DATE: 202008
